FAERS Safety Report 10162361 (Version 2)
Quarter: 2014Q2

REPORT INFORMATION
  Report Type: Spontaneous
  Country: US (occurrence: US)
  Receive Date: 20140509
  Receipt Date: 20140513
  Transmission Date: 20141212
  Serious: No
  Sender: FDA-Public Use
  Company Number: US-TEVA-479184USA

PATIENT
  Age: 67 Year
  Sex: Male
  Weight: 81.72 kg

DRUGS (5)
  1. QVAR [Suspect]
     Indication: RESPIRATORY TRACT INFECTION
     Route: 055
  2. QVAR [Suspect]
     Indication: COUGH
  3. PROAIR HFA [Suspect]
     Route: 055
  4. ZYRTEC [Concomitant]
  5. ROBITUSSIN [Concomitant]

REACTIONS (20)
  - Blood pressure decreased [Unknown]
  - Heart rate increased [Not Recovered/Not Resolved]
  - Therapeutic response changed [Unknown]
  - Swelling face [Not Recovered/Not Resolved]
  - Weight increased [Not Recovered/Not Resolved]
  - Fatigue [Not Recovered/Not Resolved]
  - Asthenia [Not Recovered/Not Resolved]
  - Candida infection [Not Recovered/Not Resolved]
  - Tooth injury [Unknown]
  - Emotional disorder [Not Recovered/Not Resolved]
  - Erythema [Recovered/Resolved]
  - Pruritus [Not Recovered/Not Resolved]
  - Erythema [Recovered/Resolved]
  - Erythema [Recovered/Resolved]
  - Drug administration error [Unknown]
  - Blood pressure increased [Unknown]
  - Feeling abnormal [Unknown]
  - Cough [Unknown]
  - Product quality issue [Unknown]
  - Drug ineffective [Unknown]
